FAERS Safety Report 8386167-1 (Version None)
Quarter: 2012Q2

REPORT INFORMATION
  Report Type: 
  Country: None (occurrence: None)
  Receive Date: 20120523
  Receipt Date: 20120509
  Transmission Date: 20120825
  Serious: Yes (Other)
  Sender: FDA-Public Use
  Company Number: FK201201341

PATIENT
  Age: 48 Year
  Sex: Male

DRUGS (3)
  1. VANCOMYCIN [Suspect]
     Indication: BACTERIAL INFECTION
     Dosage: 2 GM, 2 IN 1 D, INTRAVENOUS (NOT OTHERWISE SPECIFIED), 20 MG, 1 IN D, 30 MG, 1 IN D
     Route: 042
  2. ANTIBIOTICS (ANTIBIOTICS) [Suspect]
     Indication: BACTERIAL INFECTION
     Dosage: 2 GM, 2 IN 1 D, INTRAVENOUS (NOT OTHERWISE SPECIFIED)
     Route: 042
  3. MEROPENEM [Suspect]
     Indication: BACTERIAL INFECTION
     Dosage: 4 GM, 2 IN 1 D, INTRAVENOUS (NOT OTHERWISE SPECIFIED)
     Route: 042

REACTIONS (9)
  - BRAIN OEDEMA [None]
  - PURULENCE [None]
  - LOSS OF CONSCIOUSNESS [None]
  - HYDROCEPHALUS [None]
  - TREATMENT FAILURE [None]
  - MENTAL STATUS CHANGES [None]
  - ABSCESS RUPTURE [None]
  - EPENDYMITIS [None]
  - MENINGITIS BACTERIAL [None]
